FAERS Safety Report 5377743-9 (Version None)
Quarter: 2007Q2

REPORT INFORMATION
  Report Type: 
  Country: None (occurrence: None)
  Receive Date: 20070629
  Receipt Date: 20060502
  Transmission Date: 20071010
  Serious: No
  Sender: FDA-Public Use
  Company Number: TIF2006A00020

PATIENT
  Age: 41 Year
  Sex: Female

DRUGS (1)
  1. EMANTONE DIE (LEUPROLIDE ACETATE) (INJECTION) [Suspect]
     Indication: IN VITRO FERTILISATION
     Dosage: 0.5 MG (1 IN 1 D), SUBCUTANEOUS
     Route: 058
     Dates: start: 20060410, end: 20060424

REACTIONS (5)
  - ABDOMINAL PAIN [None]
  - ASCITES [None]
  - FACE OEDEMA [None]
  - HYDROTHORAX [None]
  - OEDEMA PERIPHERAL [None]
